FAERS Safety Report 20084049 (Version 3)
Quarter: 2021Q4

REPORT INFORMATION
  Report Type: Report from Study
  Country: KR (occurrence: KR)
  Receive Date: 20211118
  Receipt Date: 20211126
  Transmission Date: 20220303
  Serious: Yes (Hospitalization)
  Sender: FDA-Public Use
  Company Number: KR-BIOGEN-2019BI00790650

PATIENT
  Age: 29 Year
  Sex: Male

DRUGS (6)
  1. TECFIDERA [Suspect]
     Active Substance: DIMETHYL FUMARATE
     Indication: Relapsing-remitting multiple sclerosis
     Dosage: STARTING DOSE
     Route: 048
     Dates: start: 20190601, end: 20190607
  2. TECFIDERA [Suspect]
     Active Substance: DIMETHYL FUMARATE
     Dosage: MAINTENANCE DOSE
     Route: 048
     Dates: start: 20190608, end: 20190812
  3. TECFIDERA [Suspect]
     Active Substance: DIMETHYL FUMARATE
     Dosage: ADJUSTED DOSE
     Route: 048
  4. DOMPERIDONE MALEATE [Concomitant]
     Active Substance: DOMPERIDONE MALEATE
     Indication: Prophylaxis
     Route: 065
     Dates: start: 20190626, end: 20190717
  5. ALLEGRA [Concomitant]
     Active Substance: FEXOFENADINE HYDROCHLORIDE
     Indication: Prophylaxis
     Route: 065
     Dates: start: 20190703, end: 20190705
  6. METHYSOL [Concomitant]
     Indication: Multiple sclerosis relapse
     Route: 042
     Dates: start: 20190809, end: 20190813

REACTIONS (2)
  - Multiple sclerosis relapse [Recovered/Resolved]
  - Anxiety [Recovered/Resolved]

NARRATIVE: CASE EVENT DATE: 20190806
